FAERS Safety Report 8859508 (Version 1)
Quarter: 2012Q4

REPORT INFORMATION
  Report Type: 
  Country: NZ (occurrence: NZ)
  Receive Date: 20121024
  Receipt Date: 20121024
  Transmission Date: 20130627
  Serious: Yes (Hospitalization)
  Sender: FDA-Public Use
  Company Number: NZ-ASTRAZENECA-2012SE79643

PATIENT
  Age: 81 Year
  Sex: Female

DRUGS (6)
  1. OMEPRAZOLE [Suspect]
     Route: 048
  2. CITALOPRAM [Interacting]
  3. BENDROFLUMETHIAZIDE [Concomitant]
  4. ASPIRIN [Concomitant]
  5. QUININE [Concomitant]
  6. LOPERAMIDE [Concomitant]

REACTIONS (2)
  - Drug interaction [Unknown]
  - Hyponatraemia [Unknown]
